FAERS Safety Report 8519431-3 (Version None)
Quarter: 2012Q3

REPORT INFORMATION
  Report Type: 
  Country: None (occurrence: None)
  Receive Date: 20120718
  Receipt Date: 20120716
  Transmission Date: 20120928
  Serious: No
  Sender: FDA-Public Use
  Company Number: US-TEVA-348908USA

PATIENT
  Sex: Female
  Weight: 54.48 kg

DRUGS (1)
  1. PLAN B ONE-STEP [Suspect]
     Indication: POST COITAL CONTRACEPTION
     Dosage: 1.5 MILLIGRAM;
     Route: 048
     Dates: start: 20120601, end: 20120601

REACTIONS (18)
  - DIARRHOEA [None]
  - ANXIETY [None]
  - FLATULENCE [None]
  - FATIGUE [None]
  - BLOOD GLUCOSE DECREASED [None]
  - SOMATOFORM DISORDER PREGNANCY [None]
  - HUNGER [None]
  - PELVIC PAIN [None]
  - MENSTRUATION IRREGULAR [None]
  - POLLAKIURIA [None]
  - DYSGEUSIA [None]
  - BACK PAIN [None]
  - FEELING ABNORMAL [None]
  - CRYING [None]
  - HEADACHE [None]
  - CONSTIPATION [None]
  - DIZZINESS [None]
  - NAUSEA [None]
